FAERS Safety Report 4579711-3 (Version None)
Quarter: 2005Q1

REPORT INFORMATION
  Report Type: 
  Country: None (occurrence: None)
  Receive Date: 20050210
  Receipt Date: 20050207
  Transmission Date: 20050727
  Serious: Yes (Hospitalization)
  Sender: FDA-Public Use
  Company Number: A500106000/AKO-4723-AE

PATIENT
  Age: 12 Year
  Sex: Male

DRUGS (2)
  1. FENTANYL [Suspect]
     Indication: OESOPHAGOGASTRODUODENOSCOPY
     Dosage: 100MCG, ONCE, IV
     Route: 042
     Dates: start: 20050203
  2. VERSED [Suspect]
     Indication: OESOPHAGOGASTRODUODENOSCOPY
     Dosage: 12MG, ONCE, IV
     Route: 042
     Dates: start: 20050203

REACTIONS (3)
  - ANAESTHETIC COMPLICATION [None]
  - APHASIA [None]
  - DYSPHASIA [None]
